FAERS Safety Report 10073595 (Version 1)
Quarter: 2014Q2

REPORT INFORMATION
  Report Type: Spontaneous
  Country: US (occurrence: DE)
  Receive Date: 20140411
  Receipt Date: 20140411
  Transmission Date: 20141212
  Serious: Yes (Hospitalization)
  Sender: FDA-Public Use
  Company Number: DE-FRI-1000066254

PATIENT
  Sex: Male

DRUGS (1)
  1. ROFLUMILAST [Suspect]
     Indication: CHRONIC OBSTRUCTIVE PULMONARY DISEASE
     Dates: start: 201001

REACTIONS (2)
  - Pulmonary mass [Not Recovered/Not Resolved]
  - Pulmonary sarcoidosis [Not Recovered/Not Resolved]
